FAERS Safety Report 6417755-7 (Version None)
Quarter: 2009Q4

REPORT INFORMATION
  Report Type: 
  Country: None (occurrence: None)
  Receive Date: 20091028
  Receipt Date: 20090928
  Transmission Date: 20100525
  Serious: No
  Sender: FDA-Public Use
  Company Number: US-BAYER-200915050BCC

PATIENT
  Age: 68 Year
  Sex: Female
  Weight: 68 kg

DRUGS (2)
  1. ALEVE [Suspect]
     Indication: TRIGEMINAL NEURALGIA
     Dosage: TOTAL DAILY DOSE: 880 MG  UNIT DOSE: 220 MG
     Route: 048
     Dates: start: 20090901
  2. ACETAMINOPHEN [Suspect]
     Indication: TRIGEMINAL NEURALGIA
     Dates: start: 20090928

REACTIONS (3)
  - MALAISE [None]
  - NAUSEA [None]
  - TRIGEMINAL NEURALGIA [None]
